FAERS Safety Report 4468199-9 (Version None)
Quarter: 2004Q4

REPORT INFORMATION
  Report Type: 
  Country: None (occurrence: None)
  Receive Date: 20041007
  Receipt Date: 20040922
  Transmission Date: 20050328
  Serious: Yes (Hospitalization, Other)
  Sender: FDA-Public Use
  Company Number: US-MERCK-0409USA01753

PATIENT
  Age: 75 Year
  Sex: Male

DRUGS (6)
  1. NORVASC [Concomitant]
     Indication: HYPERTENSION
     Route: 065
     Dates: end: 20040918
  2. ASPIRIN [Concomitant]
     Route: 065
  3. ATENOLOL [Concomitant]
     Indication: HYPERTENSION
     Route: 065
  4. PRINIVIL [Concomitant]
     Indication: HYPERTENSION
     Route: 065
     Dates: end: 20040917
  5. ZOCOR [Suspect]
     Indication: BLOOD CHOLESTEROL INCREASED
     Route: 048
  6. ZOCOR [Suspect]
     Route: 048

REACTIONS (4)
  - EXTREMITY NECROSIS [None]
  - MYOPATHY [None]
  - RENAL FAILURE [None]
  - RHABDOMYOLYSIS [None]
